FAERS Safety Report 19112189 (Version 2)
Quarter: 2021Q2

REPORT INFORMATION
  Report Type: Spontaneous
  Country: US (occurrence: US)
  Receive Date: 20210408
  Receipt Date: 20210429
  Transmission Date: 20210717
  Serious: No
  Sender: FDA-Public Use
  Company Number: US-BIOGEN-2021BI00998618

PATIENT
  Age: 56 Year
  Sex: Female

DRUGS (4)
  1. AVONEX PEN [Suspect]
     Active Substance: INTERFERON BETA-1A
  2. AVONEX PEN [Suspect]
     Active Substance: INTERFERON BETA-1A
  3. AVONEX PEN [Suspect]
     Active Substance: INTERFERON BETA-1A
     Indication: MULTIPLE SCLEROSIS
     Route: 030
     Dates: start: 202102
  4. AVONEX PEN [Suspect]
     Active Substance: INTERFERON BETA-1A

REACTIONS (2)
  - Insomnia [Not Recovered/Not Resolved]
  - Chills [Unknown]

NARRATIVE: CASE EVENT DATE: 20191111
